FAERS Safety Report 22315075 (Version 1)
Quarter: 2023Q2

REPORT INFORMATION
  Report Type: Spontaneous
  Country: CA (occurrence: CA)
  Receive Date: 20230512
  Receipt Date: 20230512
  Transmission Date: 20230721
  Serious: Yes (Other)
  Sender: FDA-Public Use
  Company Number: CA-TEVA-2023-CA-2885296

PATIENT
  Age: 8 Year
  Sex: Male

DRUGS (8)
  1. MESALAMINE [Suspect]
     Active Substance: MESALAMINE
     Indication: X-linked lymphoproliferative syndrome
     Route: 065
  2. CANAKINUMAB [Suspect]
     Active Substance: CANAKINUMAB
     Indication: X-linked lymphoproliferative syndrome
     Route: 065
  3. COLCHICINE [Suspect]
     Active Substance: COLCHICINE
     Indication: X-linked lymphoproliferative syndrome
     Route: 065
  4. ENTYVIO [Suspect]
     Active Substance: VEDOLIZUMAB
     Indication: X-linked lymphoproliferative syndrome
     Route: 065
  5. ERELZI [Suspect]
     Active Substance: ETANERCEPT-SZZS
     Indication: X-linked lymphoproliferative syndrome
     Route: 065
  6. INFLIXIMAB [Suspect]
     Active Substance: INFLIXIMAB
     Indication: X-linked lymphoproliferative syndrome
     Route: 065
  7. RITUXIMAB [Suspect]
     Active Substance: RITUXIMAB
     Indication: X-linked lymphoproliferative syndrome
     Route: 065
  8. TOCILIZUMAB [Suspect]
     Active Substance: TOCILIZUMAB
     Indication: X-linked lymphoproliferative syndrome
     Route: 065

REACTIONS (7)
  - Cellulitis [Unknown]
  - Growth retardation [Unknown]
  - Muscle abscess [Unknown]
  - Osteoporosis [Unknown]
  - Pneumonia streptococcal [Unknown]
  - Secondary adrenocortical insufficiency [Unknown]
  - Staphylococcal infection [Unknown]
